FAERS Safety Report 7257805-1 (Version None)
Quarter: 2011Q1

REPORT INFORMATION
  Report Type: 
  Country: None (occurrence: None)
  Receive Date: 20110129
  Receipt Date: 20100507
  Transmission Date: 20110831
  Serious: Yes (Other)
  Sender: FDA-Public Use
  Company Number: US-ABBOTT-10P-163-0642553-00

PATIENT
  Sex: Female
  Weight: 62.652 kg

DRUGS (9)
  1. HUMIRA [Suspect]
     Indication: ANKYLOSING SPONDYLITIS
     Route: 058
  2. BLACOFEN [Concomitant]
  3. BC PILLS [Concomitant]
  4. TRILEXAL [Concomitant]
  5. VALIUM [Concomitant]
  6. ISONIAZID [Concomitant]
     Indication: TUBERCULOSIS
  7. VITAMIN B [Concomitant]
  8. HUMIRA [Suspect]
     Indication: COLITIS ULCERATIVE
     Route: 058
     Dates: start: 20100201
  9. CELEBREX [Concomitant]

REACTIONS (3)
  - DEVICE MALFUNCTION [None]
  - TUBERCULOSIS [None]
  - HEADACHE [None]
